FAERS Safety Report 4847289-2 (Version None)
Quarter: 2005Q4

REPORT INFORMATION
  Report Type: 
  Country: None (occurrence: None)
  Receive Date: 20051205
  Receipt Date: 20051118
  Transmission Date: 20060501
  Serious: Yes (Other)
  Sender: FDA-Public Use
  Company Number: 2005BI017126

PATIENT
  Age: 50 Year
  Sex: Male

DRUGS (5)
  1. NATALIZUMAB [Suspect]
     Indication: CROHN'S DISEASE
     Dosage: 300 MG; QM; IV
     Route: 042
     Dates: start: 20041201, end: 20050207
  2. 6-MP [Concomitant]
  3. ESOMEPRAZOLE [Concomitant]
  4. METAMUCIL [Concomitant]
  5. LOPERAMIDE [Concomitant]

REACTIONS (9)
  - ARTHRALGIA [None]
  - B-CELL LYMPHOMA [None]
  - CHOLELITHIASIS [None]
  - CONSTIPATION [None]
  - GALLBLADDER POLYP [None]
  - HAEMANGIOMA [None]
  - HEADACHE [None]
  - HYPERPLASTIC CHOLECYSTOPATHY [None]
  - SINUS DISORDER [None]
